FAERS Safety Report 10708057 (Version 2)
Quarter: 2015Q3

REPORT INFORMATION
  Report Type: Spontaneous
  Country: US (occurrence: US)
  Receive Date: 20150113
  Receipt Date: 20150717
  Transmission Date: 20151125
  Serious: Yes (Other)
  Sender: FDA-Public Use
  Company Number: US-PFIZER INC-2015008515

PATIENT
  Age: 73 Year
  Sex: Male
  Weight: 102.4 kg

DRUGS (7)
  1. GENOTROPIN MQ [Suspect]
     Active Substance: SOMATROPIN
     Indication: HYPOTHYROIDISM
     Dosage: 0.4 MG, 1X/DAY
     Route: 058
     Dates: start: 20071218
  2. GENOTROPIN MQ [Suspect]
     Active Substance: SOMATROPIN
     Dosage: 0.4 MG, 1X/DAY
     Route: 058
     Dates: start: 201405, end: 201505
  3. ELIQUIS [Concomitant]
     Active Substance: APIXABAN
     Dosage: 894/5
  4. CLONIDINE. [Concomitant]
     Active Substance: CLONIDINE
     Dosage: 0.2 MG, UNK
  5. PLAVIX [Concomitant]
     Active Substance: CLOPIDOGREL BISULFATE
     Dosage: 75 MG, UNK
  6. FELODIPINE. [Concomitant]
     Active Substance: FELODIPINE
     Dosage: 138 MG, UNK
  7. METOPROLOL TARTRATE. [Concomitant]
     Active Substance: METOPROLOL TARTRATE
     Dosage: 50 MG, UNK

REACTIONS (4)
  - Cerebrovascular accident [Unknown]
  - Oropharyngeal pain [Unknown]
  - Upper respiratory tract congestion [Unknown]
  - Product use issue [Unknown]
